FAERS Safety Report 11190662 (Version 1)
Quarter: 2015Q2

REPORT INFORMATION
  Report Type: Spontaneous
  Country: US (occurrence: US)
  Receive Date: 20150615
  Receipt Date: 20150615
  Transmission Date: 20150821
  Serious: No
  Sender: FDA-Public Use
  Company Number: US-MEDA-2015030039

PATIENT
  Age: 74 Year
  Sex: Male
  Weight: 113 kg

DRUGS (10)
  1. TRAMADOL [Concomitant]
     Active Substance: TRAMADOL
     Indication: NECK PAIN
  2. VIAGRA [Concomitant]
     Active Substance: SILDENAFIL CITRATE
     Indication: ERECTILE DYSFUNCTION
  3. NABUMETONE. [Concomitant]
     Active Substance: NABUMETONE
     Indication: NECK PAIN
     Dates: start: 201501
  4. TRAMADOL [Concomitant]
     Active Substance: TRAMADOL
     Indication: BACK PAIN
  5. MUSE [Suspect]
     Active Substance: ALPROSTADIL
     Indication: ERECTILE DYSFUNCTION
     Route: 066
     Dates: start: 201502
  6. OXYCODONE [Concomitant]
     Active Substance: OXYCODONE
     Indication: BACK PAIN
  7. OXYCODONE [Concomitant]
     Active Substance: OXYCODONE
     Indication: NECK PAIN
  8. NABUMETONE. [Concomitant]
     Active Substance: NABUMETONE
     Indication: BACK PAIN
     Dates: start: 201501
  9. AMLODIPINE [Concomitant]
     Active Substance: AMLODIPINE BESYLATE
     Indication: HYPERTENSION
  10. SPIRONOLACTONE. [Concomitant]
     Active Substance: SPIRONOLACTONE
     Indication: HYPERTENSION

REACTIONS (3)
  - Drug ineffective [Unknown]
  - Penile pain [Recovering/Resolving]
  - Penile burning sensation [Recovering/Resolving]

NARRATIVE: CASE EVENT DATE: 201502
